FAERS Safety Report 11860672 (Version 2)
Quarter: 2016Q2

REPORT INFORMATION
  Report Type: Spontaneous
  Country: HU (occurrence: HU)
  Receive Date: 20151222
  Receipt Date: 20160516
  Transmission Date: 20160815
  Serious: Yes (Other)
  Sender: FDA-Public Use
  Company Number: HU-MYLANLABS-2015M1045571

PATIENT

DRUGS (1)
  1. TERBINAFINE. [Suspect]
     Active Substance: TERBINAFINE
     Indication: ONYCHOMYCOSIS
     Dosage: UNK
     Route: 065
     Dates: start: 201405

REACTIONS (6)
  - Anaemia [Unknown]
  - Thrombocytopenia [Unknown]
  - Large granular lymphocytosis [Recovering/Resolving]
  - Subacute cutaneous lupus erythematosus [Recovering/Resolving]
  - Lymphocytosis [Unknown]
  - Neutropenia [Unknown]

NARRATIVE: CASE EVENT DATE: 2014
